FAERS Safety Report 13181190 (Version 1)
Quarter: 2017Q1

REPORT INFORMATION
  Report Type: Spontaneous
  Country: US (occurrence: US)
  Receive Date: 20170202
  Receipt Date: 20170202
  Transmission Date: 20170428
  Serious: No
  Sender: FDA-Public Use
  Company Number: US-SMITH AND NEPHEW, INC-2016SMT00863

PATIENT
  Age: 58 Year
  Sex: Male
  Weight: 99.77 kg

DRUGS (1)
  1. REGRANEX [Suspect]
     Active Substance: BECAPLERMIN
     Indication: WOUND
     Dosage: UNK UNK, 3X/WEEK
     Dates: start: 201609, end: 20161005

REACTIONS (3)
  - Off label use [Unknown]
  - Inappropriate schedule of drug administration [Recovered/Resolved]
  - Application site erythema [Recovering/Resolving]

NARRATIVE: CASE EVENT DATE: 201609
